FAERS Safety Report 7880594-4 (Version None)
Quarter: 2011Q4

REPORT INFORMATION
  Report Type: 
  Country: None (occurrence: None)
  Receive Date: 20111101
  Receipt Date: 20101018
  Transmission Date: 20120403
  Serious: No
  Sender: FDA-Public Use
  Company Number: US-BAYER-201037796NA

PATIENT
  Age: 57 Year
  Sex: Male
  Weight: 95.455 kg

DRUGS (2)
  1. ULTRAVIST 300 [Suspect]
     Indication: RENAL CANCER
     Dosage: ADMINISTERED VIA UNSPECIFIED SITE USING POWER INJECTOR @ A RATE OF 3.0 ML/SECOND AND A WARMER
     Route: 042
     Dates: start: 20101018, end: 20101018
  2. ULTRAVIST 300 [Suspect]
     Indication: COMPUTERISED TOMOGRAM ABDOMEN

REACTIONS (2)
  - NASAL CONGESTION [None]
  - SNEEZING [None]
